FAERS Safety Report 23079664 (Version 1)
Quarter: 2023Q4

REPORT INFORMATION
  Report Type: Spontaneous
  Country: CA (occurrence: CA)
  Receive Date: 20231018
  Receipt Date: 20231018
  Transmission Date: 20240110
  Serious: Yes (Other)
  Sender: FDA-Public Use
  Company Number: CA-BAXTER-2023BAX033251

PATIENT
  Age: 64 Year
  Sex: Male

DRUGS (3)
  1. CEFTRIAXONE [Suspect]
     Active Substance: CEFTRIAXONE\CEFTRIAXONE SODIUM
     Indication: Pneumonia
     Dosage: DOSAGE FORM: POWDER FOR INJECTION AT AN UNSPECIFIED DOSE AND FREQUENCY (CEFTRIAXONE SODIUM)
     Route: 065
  2. CEFTRIAXONE [Suspect]
     Active Substance: CEFTRIAXONE\CEFTRIAXONE SODIUM
     Indication: Pneumonia klebsiella
     Dosage: DOSAGE FORM: POWDER FOR INJECTION AT AN UNSPECIFIED DOSE AND FREQUENCY (CEFTRIAXONE SODIUM)
     Route: 042
  3. CEFTRIAXONE [Suspect]
     Active Substance: CEFTRIAXONE\CEFTRIAXONE SODIUM
     Dosage: (CEFTRIAXONE SODIUM) AT AN UNSPECIFIED DOSE AND FREQUENCY
     Route: 042

REACTIONS (1)
  - Drug ineffective [Unknown]
